FAERS Safety Report 18751251 (Version 1)
Quarter: 2021Q1

REPORT INFORMATION
  Report Type: Spontaneous
  Country: CA (occurrence: CA)
  Receive Date: 20210118
  Receipt Date: 20210118
  Transmission Date: 20210419
  Serious: Yes (Other)
  Sender: FDA-Public Use
  Company Number: CA-ACCORD-214196

PATIENT
  Age: 62 Year
  Sex: Male

DRUGS (4)
  1. IFEX [Suspect]
     Active Substance: IFOSFAMIDE
     Indication: ANGIOMYOLIPOMA
     Route: 042
  2. DOCETAXEL. [Suspect]
     Active Substance: DOCETAXEL
     Indication: ANGIOMYOLIPOMA
     Route: 065
  3. DOXORUBICIN [Suspect]
     Active Substance: DOXORUBICIN
     Indication: ANGIOMYOLIPOMA
     Route: 065
  4. GEMCITABINE/GEMCITABINE HYDROCHLORIDE [Suspect]
     Active Substance: GEMCITABINE\GEMCITABINE HYDROCHLORIDE
     Indication: ANGIOMYOLIPOMA
     Route: 065

REACTIONS (3)
  - Angiomyolipoma [Unknown]
  - Malignant neoplasm progression [Unknown]
  - Off label use [Unknown]
